FAERS Safety Report 12687123 (Version 3)
Quarter: 2016Q4

REPORT INFORMATION
  Report Type: Spontaneous
  Country: US (occurrence: US)
  Receive Date: 20160825
  Receipt Date: 20161114
  Transmission Date: 20170207
  Serious: Yes (Other)
  Sender: FDA-Public Use
  Company Number: US-BAYER-2016-164999

PATIENT
  Age: 27 Year
  Sex: Female
  Weight: 68.27 kg

DRUGS (10)
  1. VIBRAMYCIN [Concomitant]
     Active Substance: DOXYCYCLINE
     Dosage: 100 MG, UNK
     Route: 048
  2. VITAMIN C [Concomitant]
     Active Substance: ASCORBIC ACID
     Dosage: 500 MG, QD
     Route: 048
  3. MIRENA [Suspect]
     Active Substance: LEVONORGESTREL
     Indication: CONTRACEPTION
     Dosage: UNK
     Dates: start: 20160707, end: 20160713
  4. NORMODYNE [Concomitant]
     Active Substance: LABETALOL HYDROCHLORIDE
     Dosage: 200 MG, BID
     Route: 048
  5. DOXYCYCLINE HYCLATE. [Concomitant]
     Active Substance: DOXYCYCLINE HYCLATE
     Dosage: 100 MG
  6. NICODERM CQ [Concomitant]
     Active Substance: NICOTINE
  7. FERROUS SULFATE. [Concomitant]
     Active Substance: FERROUS SULFATE
  8. LABETALOL [Concomitant]
     Active Substance: LABETALOL\LABETALOL HYDROCHLORIDE
  9. MIRENA [Suspect]
     Active Substance: LEVONORGESTREL
     Indication: GENITAL HAEMORRHAGE
  10. NICOTINE. [Concomitant]
     Active Substance: NICOTINE
     Dosage: 14 MCG/24HR, CONT
     Route: 062

REACTIONS (4)
  - Urine odour abnormal [None]
  - Postpartum haemorrhage [None]
  - Retained products of conception [Recovered/Resolved]
  - Endometrial thickening [None]

NARRATIVE: CASE EVENT DATE: 20160713
